FAERS Safety Report 4915327-4 (Version None)
Quarter: 2006Q1

REPORT INFORMATION
  Report Type: 
  Country: None (occurrence: None)
  Receive Date: 20060217
  Receipt Date: 20060207
  Transmission Date: 20060701
  Serious: Yes (Hospitalization)
  Sender: FDA-Public Use
  Company Number: FR-GLAXOSMITHKLINE-B0411771A

PATIENT
  Age: 73 Year
  Sex: Male
  Weight: 78 kg

DRUGS (17)
  1. SERETIDE [Suspect]
     Indication: BRONCHOPNEUMOPATHY
     Dosage: 2PUFF TWICE PER DAY
     Route: 055
     Dates: start: 20060105, end: 20060112
  2. CELESTENE [Suspect]
     Indication: BRONCHOPNEUMOPATHY
     Dosage: 1UNIT TWICE PER DAY
     Route: 065
     Dates: start: 20060108, end: 20060112
  3. SOLUPRED [Suspect]
     Indication: BRONCHOPNEUMOPATHY
     Dosage: 40MG TWICE PER DAY
     Route: 048
     Dates: start: 20060108, end: 20060112
  4. FUROSEMIDE [Concomitant]
     Route: 048
     Dates: end: 20060112
  5. LANTUS [Concomitant]
     Dosage: .2UNIT PER DAY
     Route: 058
     Dates: end: 20060112
  6. NOVORAPID [Concomitant]
     Dosage: .14UNIT TWICE PER DAY
     Route: 058
     Dates: end: 20060112
  7. BRONCHOKOD [Concomitant]
     Dates: start: 20060105, end: 20060112
  8. APROVEL [Concomitant]
     Dates: end: 20060112
  9. PLAVIX [Concomitant]
     Dates: end: 20060112
  10. KARDEGIC [Concomitant]
     Dates: end: 20060112
  11. ZOCOR [Concomitant]
     Dates: end: 20060112
  12. CREON [Concomitant]
     Dates: end: 20060112
  13. GOMENOL [Concomitant]
     Route: 055
     Dates: start: 20060108, end: 20060112
  14. SURBRONC [Concomitant]
     Route: 055
     Dates: start: 20060108, end: 20060112
  15. BRONCHORECTINE [Concomitant]
     Dosage: 1SUP TWICE PER DAY
     Route: 054
     Dates: end: 20060112
  16. CEFAPEROS [Concomitant]
     Dosage: 1UNIT TWICE PER DAY
     Dates: start: 20060105, end: 20060112
  17. RHINOTROPHYL [Concomitant]
     Dates: end: 20060112

REACTIONS (4)
  - DIABETES MELLITUS [None]
  - HYPERGLYCAEMIA [None]
  - MALAISE [None]
  - METABOLIC ACIDOSIS [None]
